FAERS Safety Report 4463815-X (Version None)
Quarter: 2004Q3

REPORT INFORMATION
  Report Type: 
  Country: None (occurrence: None)
  Receive Date: 20040929
  Receipt Date: 20040915
  Transmission Date: 20050211
  Serious: Yes (Death, Hospitalization, Other)
  Sender: FDA-Public Use
  Company Number: BR-SHR-03-016349

PATIENT
  Sex: Male

DRUGS (1)
  1. CAMPATH [Suspect]
     Indication: CHRONIC LYMPHOCYTIC LEUKAEMIA
     Dosage: 12 AMP, INTRAVENOUS
     Route: 042
     Dates: start: 20030708, end: 20030804

REACTIONS (7)
  - APLASIA [None]
  - BRONCHOSPASM [None]
  - DEEP VEIN THROMBOSIS [None]
  - GASTRIC ULCER HAEMORRHAGE [None]
  - MALIGNANT NEOPLASM PROGRESSION [None]
  - OEDEMA [None]
  - PNEUMONIA [None]
